FAERS Safety Report 7739476-0 (Version None)
Quarter: 2011Q3

REPORT INFORMATION
  Report Type: 
  Country: None (occurrence: None)
  Receive Date: 20110909
  Receipt Date: 20110901
  Transmission Date: 20111222
  Serious: Yes (Hospitalization)
  Sender: FDA-Public Use
  Company Number: FR-PFIZER INC-2011203992

PATIENT
  Age: 42 Year
  Sex: Female

DRUGS (1)
  1. TRIPHASIL-21 [Suspect]
     Indication: CONTRACEPTION
     Dosage: UNK
     Route: 048
     Dates: end: 20101201

REACTIONS (1)
  - CEREBRAL INFARCTION [None]
